FAERS Safety Report 4891822-1 (Version None)
Quarter: 2006Q1

REPORT INFORMATION
  Report Type: 
  Country: None (occurrence: None)
  Receive Date: 20060126
  Receipt Date: 20060113
  Transmission Date: 20060701
  Serious: Yes (Death)
  Sender: FDA-Public Use
  Company Number: GB-SOLVAY-00206000230

PATIENT
  Age: 725 Month
  Sex: Male
  Weight: 85 kg

DRUGS (13)
  1. COVERSYL [Suspect]
     Indication: HYPERTENSION
     Dosage: DAILY DOSE:  UNKNOWN
     Route: 048
     Dates: start: 20030101, end: 20051201
  2. DIAMICRON MR [Concomitant]
     Indication: ILL-DEFINED DISORDER
     Dosage: DAILY DOSE: 30 MILLIGRAM(S)
     Route: 048
     Dates: start: 20030116, end: 20040301
  3. METFORMIN HCL [Concomitant]
     Indication: ILL-DEFINED DISORDER
     Dosage: DAILY DOSE:  UNKNOWN
     Route: 048
  4. BLINDED THERAPY (PERINDOPRIL VS PLACEBO) [Suspect]
     Indication: PROPHYLAXIS
     Dosage: DAILY DOSE:  UNKNOWN
     Route: 065
     Dates: start: 20030117, end: 20040616
  5. FUROSEMIDE [Suspect]
     Indication: ILL-DEFINED DISORDER
     Dosage: DAILY DOSE:  UNKNOWN
     Route: 065
     Dates: end: 20051201
  6. SIMVASTATIN [Concomitant]
     Indication: ILL-DEFINED DISORDER
     Dosage: DAILY DOSE:  UNKNOWN
     Route: 048
  7. LANZOPRAZOL [Concomitant]
     Indication: ILL-DEFINED DISORDER
     Dosage: DAILY DOSE:  UNKNOWN
     Route: 048
  8. WARFARIN [Concomitant]
     Indication: ILL-DEFINED DISORDER
     Dosage: DAILY DOSE:  UNKNOWN
     Route: 048
  9. DIGOXIN [Concomitant]
     Indication: ILL-DEFINED DISORDER
     Dosage: DAILY DOSE:  UNKNOWN
     Route: 065
  10. RIFATER [Concomitant]
     Indication: ILL-DEFINED DISORDER
     Dosage: DAILY DOSE:  UNKNOWN
     Route: 065
  11. PYRIDOXIN [Concomitant]
     Indication: ILL-DEFINED DISORDER
     Dosage: DAILY DOSE:  UNKNOWN
     Route: 065
  12. BISOPROLOL [Concomitant]
     Indication: ILL-DEFINED DISORDER
     Dosage: DAILY DOSE:  UNKNOWN
     Route: 065
  13. ETHAMBUTOL HCL [Concomitant]
     Indication: ILL-DEFINED DISORDER
     Dosage: DAILY DOSE:  UNKNOWN
     Route: 065

REACTIONS (8)
  - ACIDOSIS [None]
  - ARTHRITIS INFECTIVE [None]
  - CARDIAC FAILURE [None]
  - HEPATOMEGALY [None]
  - HYPERKALAEMIA [None]
  - HYPOTENSION [None]
  - RENAL FAILURE ACUTE [None]
  - SEPSIS [None]
